APPROVED DRUG PRODUCT: IBUPROFEN
Active Ingredient: IBUPROFEN
Strength: 200MG
Dosage Form/Route: TABLET;ORAL
Application: A075661 | Product #001
Applicant: DR REDDYS LABORATORIES INC
Approved: Dec 12, 2001 | RLD: No | RS: No | Type: OTC